FAERS Safety Report 14848753 (Version 1)
Quarter: 2018Q2

REPORT INFORMATION
  Report Type: Report from Study
  Country: US (occurrence: US)
  Receive Date: 20180504
  Receipt Date: 20180504
  Transmission Date: 20180711
  Serious: Yes (Life-Threatening, Hospitalization)
  Sender: FDA-Public Use
  Company Number: US-PFIZER INC-2018180934

PATIENT
  Age: 68 Year
  Sex: Male
  Weight: 118 kg

DRUGS (16)
  1. METOPROLOL. [Concomitant]
     Active Substance: METOPROLOL
  2. LOSARTAN. [Concomitant]
     Active Substance: LOSARTAN
  3. ACETAMINOPHEN. [Concomitant]
     Active Substance: ACETAMINOPHEN
  4. SIMVASTATIN. [Concomitant]
     Active Substance: SIMVASTATIN
  5. SYNTHROID [Concomitant]
     Active Substance: LEVOTHYROXINE SODIUM
  6. ONDANSETRON [Concomitant]
     Active Substance: ONDANSETRON
  7. AMLODIPINE [Concomitant]
     Active Substance: AMLODIPINE BESYLATE
  8. TAMSULOSIN [Concomitant]
     Active Substance: TAMSULOSIN
  9. SUTENT [Suspect]
     Active Substance: SUNITINIB MALATE
     Dosage: 37.5 MG, CYCLIC: 1 IN 1 D, 4 WEEKS ON TREATMENT FOLLOWED BY 2 WEEKS OFF TREATMENT
     Route: 048
     Dates: start: 20171005, end: 20171102
  10. PAROXETINE. [Concomitant]
     Active Substance: PAROXETINE
  11. SUTENT [Suspect]
     Active Substance: SUNITINIB MALATE
     Indication: METASTATIC RENAL CELL CARCINOMA
     Dosage: 50 MG, CYCLIC: 1 IN 1 D, 4 WEEKS ON TREATMENT FOLLOWED BY 2 WEEKS OFF TREATMENT
     Route: 048
     Dates: start: 20170824, end: 20170921
  12. SUTENT [Suspect]
     Active Substance: SUNITINIB MALATE
     Dosage: 37.5 MG, CYCLIC: 1 IN 1 D, 4 WEEKS ON TREATMENT FOLLOWED BY 2 WEEKS OFF TREATMENT
     Route: 048
     Dates: start: 20171116, end: 20171213
  13. LATANOPROST. [Concomitant]
     Active Substance: LATANOPROST
  14. OMEPRAZOLE. [Concomitant]
     Active Substance: OMEPRAZOLE
  15. VITAMIN D2 [Concomitant]
     Active Substance: ERGOCALCIFEROL
  16. VALIUM [Concomitant]
     Active Substance: DIAZEPAM

REACTIONS (3)
  - Atrial fibrillation [Recovered/Resolved]
  - Syncope [Recovered/Resolved]
  - Ventricular arrhythmia [Recovered/Resolved]

NARRATIVE: CASE EVENT DATE: 20171216
